FAERS Safety Report 21265557 (Version 5)
Quarter: 2022Q3

REPORT INFORMATION
  Report Type: Spontaneous
  Country: ES (occurrence: ES)
  Receive Date: 20220829
  Receipt Date: 20220921
  Transmission Date: 20221027
  Serious: Yes (Hospitalization, Other)
  Sender: FDA-Public Use
  Company Number: ES-009507513-2208ESP009917

PATIENT
  Age: 52 Year
  Sex: Male
  Weight: 93 kg

DRUGS (10)
  1. KEYTRUDA [Suspect]
     Active Substance: PEMBROLIZUMAB
     Indication: Head and neck cancer metastatic
     Dosage: 200 MILLIGRAM,  EVERY 21 DAYS
     Dates: start: 20220421, end: 20220421
  2. KEYTRUDA [Suspect]
     Active Substance: PEMBROLIZUMAB
     Dosage: 200MG, EVERY 21 DAYS
     Dates: start: 20220512, end: 20220512
  3. KEYTRUDA [Suspect]
     Active Substance: PEMBROLIZUMAB
     Dosage: 200MG, EVERY 21 DAYS
     Dates: start: 20220602, end: 20220602
  4. CISPLATIN [Suspect]
     Active Substance: CISPLATIN
     Indication: Head and neck cancer metastatic
     Dosage: 210 MILLIGRAM, EVERY 21 DAYS
     Route: 042
     Dates: start: 20220421, end: 20220421
  5. CISPLATIN [Suspect]
     Active Substance: CISPLATIN
     Dosage: 210 MILLIGRAM, EVERY 21 DAYS
     Route: 042
     Dates: start: 20220512, end: 20220512
  6. FLUOROURACIL [Suspect]
     Active Substance: FLUOROURACIL
     Indication: Head and neck cancer metastatic
     Dosage: UNK
     Dates: start: 20220421, end: 20220421
  7. FLUOROURACIL [Suspect]
     Active Substance: FLUOROURACIL
     Dosage: UNK
     Dates: start: 20220512, end: 20220512
  8. FLUOROURACIL [Suspect]
     Active Substance: FLUOROURACIL
     Dosage: UNK
     Dates: start: 20220602, end: 20220602
  9. CARBOPLATIN [Suspect]
     Active Substance: CARBOPLATIN
     Indication: Head and neck cancer metastatic
     Dosage: UNK
     Dates: start: 20220612, end: 20220612
  10. AMLODIPINE, VALSARTAN, HYDROCHLOROTHIAZIDE [Concomitant]
     Active Substance: AMLODIPINE BESYLATE\HYDROCHLOROTHIAZIDE\VALSARTAN
     Indication: Hypertension
     Dosage: 1 TABLE, QD; 320/10/25

REACTIONS (3)
  - Nephropathy toxic [Unknown]
  - Renal failure [Recovering/Resolving]
  - Hypokalaemia [Unknown]

NARRATIVE: CASE EVENT DATE: 20220601
